FAERS Safety Report 5968992-7 (Version None)
Quarter: 2008Q4

REPORT INFORMATION
  Report Type: 
  Country: None (occurrence: None)
  Receive Date: 20081126
  Receipt Date: 20081117
  Transmission Date: 20090506
  Serious: Yes (Hospitalization)
  Sender: FDA-Public Use
  Company Number: US-ELI_LILLY_AND_COMPANY-US200811004091

PATIENT
  Age: 33 Year
  Sex: Male

DRUGS (4)
  1. ZYPREXA [Suspect]
     Indication: AGGRESSION
     Dosage: 10 MG, DAILY (1/D)
  2. ARIPIPRAZOLE [Concomitant]
     Indication: INSOMNIA
     Dosage: 5 MG, DAILY (1/D)
  3. ARIPIPRAZOLE [Concomitant]
     Dosage: 10 MG, DAILY (1/D)
  4. BENZATROPINE [Concomitant]
     Indication: IRRITABILITY

REACTIONS (15)
  - ACTIVITIES OF DAILY LIVING IMPAIRED [None]
  - ALANINE AMINOTRANSFERASE INCREASED [None]
  - ANOREXIA [None]
  - ASPARTATE AMINOTRANSFERASE INCREASED [None]
  - ASTHENIA [None]
  - BLOOD UREA INCREASED [None]
  - DRUG INTERACTION [None]
  - FLUID INTAKE REDUCED [None]
  - HYPOKALAEMIA [None]
  - MOBILITY DECREASED [None]
  - NEUROLEPTIC MALIGNANT SYNDROME [None]
  - PAIN [None]
  - PNEUMONIA [None]
  - SKIN INFECTION [None]
  - URINARY TRACT INFECTION [None]
